FAERS Safety Report 8954735 (Version 1)
Quarter: 2012Q4

REPORT INFORMATION
  Report Type: Spontaneous
  Country: GB (occurrence: None)
  Receive Date: 20121130
  Receipt Date: 20121130
  Transmission Date: 20130627
  Serious: Yes (Hospitalization)
  Sender: FDA-Public Use
  Company Number: FK201203475

PATIENT
  Age: 64 Year
  Sex: Female
  Weight: 66 kg

DRUGS (3)
  1. PACLITAXEL [Suspect]
     Indication: OVARIAN CANCER
     Dosage: 141 mg,  Intravenous  (not otherwise specified)
     Route: 042
     Dates: start: 20120921
  2. CARBOPLATIN [Suspect]
     Indication: OVARIAN CANCER
     Dates: start: 20120921
  3. BEVACIZUMAB [Suspect]
     Indication: OVARIAN CANCER
     Dosage: 1000 mg,  Intravenous (not otherwise specified)
     Route: 042
     Dates: start: 20120921, end: 20121105

REACTIONS (3)
  - Hypertension [None]
  - Neutropenic sepsis [None]
  - Syncope [None]
